FAERS Safety Report 4842644-9 (Version None)
Quarter: 2005Q4

REPORT INFORMATION
  Report Type: 
  Country: None (occurrence: None)
  Receive Date: 20051129
  Receipt Date: 20051111
  Transmission Date: 20060501
  Serious: Yes (Death)
  Sender: FDA-Public Use
  Company Number: US200511000664

PATIENT
  Age: 68 Year
  Sex: Female

DRUGS (1)
  1. XIGRIS [Suspect]
     Indication: MULTI-ORGAN FAILURE
     Dates: start: 20051101

REACTIONS (3)
  - ACUTE MYOCARDIAL INFARCTION [None]
  - ACUTE RESPIRATORY DISTRESS SYNDROME [None]
  - MULTI-ORGAN FAILURE [None]
